FAERS Safety Report 15857653 (Version 1)
Quarter: 2018Q4

REPORT INFORMATION
  Report Type: Spontaneous
  Country: US (occurrence: US)
  Receive Date: 20181228
  Receipt Date: 20181228
  Transmission Date: 20190205
  Serious: Yes (Death, Hospitalization)
  Sender: FDA-Public Use
  Company Number: None

PATIENT
  Age: 3 Year
  Weight: 15.4 kg

DRUGS (6)
  1. ONCASPAR [Suspect]
     Active Substance: PEGASPARGASE
     Dosage: ?          OTHER DOSE:1650 UNIT;?
     Dates: end: 20181209
  2. CYTARABINE. [Suspect]
     Active Substance: CYTARABINE
     Dates: end: 20181205
  3. METHOTREXATE. [Suspect]
     Active Substance: METHOTREXATE
     Dates: end: 20181213
  4. VINCRISTINE SULFATE. [Suspect]
     Active Substance: VINCRISTINE SULFATE
     Dates: end: 20181220
  5. DAUNORUBICIN [Suspect]
     Active Substance: DAUNORUBICIN
     Dates: end: 20181213
  6. DEXAMETHASONE. [Suspect]
     Active Substance: DEXAMETHASONE
     Dates: end: 20181219

REACTIONS (5)
  - Cardio-respiratory arrest [None]
  - Clostridial sepsis [None]
  - Abdominal compartment syndrome [None]
  - Colitis [None]
  - Septic shock [None]

NARRATIVE: CASE EVENT DATE: 20181220
